FAERS Safety Report 23070422 (Version 2)
Quarter: 2023Q4

REPORT INFORMATION
  Report Type: Spontaneous
  Country: GB (occurrence: GB)
  Receive Date: 20231016
  Receipt Date: 20231020
  Transmission Date: 20240109
  Serious: Yes (Other)
  Sender: FDA-Public Use
  Company Number: GB-AstraZeneca-2023A221533

PATIENT
  Sex: Female

DRUGS (3)
  1. TAMOXIFEN [Suspect]
     Active Substance: TAMOXIFEN
     Indication: Breast cancer female
     Route: 048
     Dates: start: 201906
  2. TAMOXIFEN [Suspect]
     Active Substance: TAMOXIFEN
     Dosage: DURATION: 267 DAYS
     Route: 048
     Dates: start: 20210817, end: 20220510
  3. GOSERELIN [Suspect]
     Active Substance: GOSERELIN
     Indication: Breast cancer female
     Dosage: DURATION: 234 DAYS
     Route: 058
     Dates: start: 20210817, end: 20220407

REACTIONS (2)
  - Malignant neoplasm progression [Unknown]
  - Dysphonia [Unknown]

NARRATIVE: CASE EVENT DATE: 20230706
